FAERS Safety Report 7269810-X (Version None)
Quarter: 2011Q1

REPORT INFORMATION
  Report Type: 
  Country: None (occurrence: None)
  Receive Date: 20110202
  Receipt Date: 20110128
  Transmission Date: 20110831
  Serious: Yes (Hospitalization)
  Sender: FDA-Public Use
  Company Number: DE-SANOFI-AVENTIS-2010SA040540

PATIENT
  Age: 69 Year
  Sex: Male

DRUGS (10)
  1. RANITIC [Concomitant]
     Indication: PREMEDICATION
     Route: 042
     Dates: start: 20100610, end: 20100610
  2. MAGNESIUM SULFATE [Concomitant]
     Indication: PREMEDICATION
     Route: 042
     Dates: start: 20100610, end: 20100610
  3. DOCETAXEL [Suspect]
     Indication: NON-SMALL CELL LUNG CANCER
     Route: 041
     Dates: start: 20100610, end: 20100610
  4. SOLU-DECORTIN-H [Concomitant]
     Indication: PREMEDICATION
     Route: 042
     Dates: start: 20100610, end: 20100610
  5. DEXAMETHASONE [Concomitant]
     Route: 042
     Dates: start: 20100610, end: 20100610
  6. OXALIPLATIN [Suspect]
     Indication: NON-SMALL CELL LUNG CANCER
     Route: 041
     Dates: start: 20100610, end: 20100610
  7. FENISTIL [Concomitant]
     Indication: PREMEDICATION
     Dates: start: 20100610, end: 20100610
  8. DEXAMETHASONE [Concomitant]
     Indication: PREMEDICATION
     Route: 048
     Dates: start: 20100609, end: 20100609
  9. KEVATRIL [Concomitant]
     Indication: PREMEDICATION
     Route: 042
     Dates: start: 20100610, end: 20100610
  10. CALCIUM GLUCONATE [Concomitant]
     Indication: PREMEDICATION
     Route: 042
     Dates: start: 20100610, end: 20100610

REACTIONS (3)
  - SYNCOPE [None]
  - DEHYDRATION [None]
  - LEUKOPENIA [None]
